FAERS Safety Report 10044262 (Version 1)
Quarter: 2014Q1

REPORT INFORMATION
  Report Type: Report from Study
  Country: CA (occurrence: CA)
  Receive Date: 20140328
  Receipt Date: 20140328
  Transmission Date: 20141002
  Serious: Yes (Other)
  Sender: FDA-Public Use
  Company Number: CA-ABBVIE-14P-028-1215463-00

PATIENT
  Sex: Female

DRUGS (1)
  1. HUMIRA [Suspect]
     Indication: HIDRADENITIS
     Route: 058

REACTIONS (4)
  - Pyoderma gangrenosum [Not Recovered/Not Resolved]
  - Hidradenitis [Recovering/Resolving]
  - Erythema nodosum [Unknown]
  - Skin lesion [Unknown]
